FAERS Safety Report 5770400-6 (Version None)
Quarter: 2008Q2

REPORT INFORMATION
  Report Type: 
  Country: None (occurrence: None)
  Receive Date: 20080613
  Receipt Date: 20080429
  Transmission Date: 20081010
  Serious: No
  Sender: FDA-Public Use
  Company Number: US-ABBOTT-08P-163-0449935-00

PATIENT
  Sex: Female

DRUGS (4)
  1. HUMIRA [Suspect]
     Indication: PSORIATIC ARTHROPATHY
     Route: 058
     Dates: start: 20080321
  2. HUMIRA [Suspect]
     Indication: PSORIASIS
     Route: 058
     Dates: start: 20080321, end: 20080321
  3. TOPICAL ACNE PRODUCT [Concomitant]
     Indication: ACNE
     Route: 061
  4. NORGESTIMATE AND ETHINYL ESTRADIOL [Concomitant]
     Indication: CONTRACEPTION
     Route: 048

REACTIONS (3)
  - DYSMENORRHOEA [None]
  - THROMBOSIS [None]
  - VAGINAL HAEMORRHAGE [None]
